FAERS Safety Report 23422761 (Version 1)
Quarter: 2024Q1

REPORT INFORMATION
  Report Type: Spontaneous
  Country: US (occurrence: None)
  Receive Date: 20240118
  Receipt Date: 20240118
  Transmission Date: 20240409
  Serious: Yes (unspecified)
  Sender: FDA-Public Use
  Company Number: None

PATIENT
  Age: 82 Year
  Sex: Female
  Weight: 59.42 kg

DRUGS (17)
  1. PREDNISONE [Suspect]
     Active Substance: PREDNISONE
     Indication: Polymyalgia rheumatica
     Dosage: FREQUENCY : DAILY;?
     Route: 048
     Dates: start: 20230207, end: 20231224
  2. PREDNISONE [Suspect]
     Active Substance: PREDNISONE
     Indication: Inflammation
  3. PREDNISONE [Suspect]
     Active Substance: PREDNISONE
     Indication: Swelling
  4. PREDNISONE [Suspect]
     Active Substance: PREDNISONE
     Indication: Musculoskeletal stiffness
  5. BYSTOLIC [Concomitant]
     Active Substance: NEBIVOLOL HYDROCHLORIDE
  6. PROCARDIA [Concomitant]
     Active Substance: NIFEDIPINE
  7. BENICAR [Concomitant]
     Active Substance: OLMESARTAN MEDOXOMIL
  8. LOZOL [Concomitant]
     Active Substance: INDAPAMIDE
  9. ZETIA [Concomitant]
     Active Substance: EZETIMIBE
  10. ASPIRIN [Concomitant]
     Active Substance: ASPIRIN
  11. ESTRACE [Concomitant]
     Active Substance: ESTRADIOL
  12. NUTRAFOL [Concomitant]
  13. Omega Fatty Acid [Concomitant]
  14. BIOTIN [Concomitant]
     Active Substance: BIOTIN
  15. VITAMIN B12 [Concomitant]
     Active Substance: CYANOCOBALAMIN
  16. VITAMIN E [Concomitant]
     Active Substance: .ALPHA.-TOCOPHEROL
  17. D.H.E.A. [Concomitant]

REACTIONS (6)
  - Prescribed overdose [None]
  - Blindness [None]
  - Giant cell arteritis [None]
  - Hypertension [None]
  - Blood thyroid stimulating hormone increased [None]
  - Hypothyroidism [None]

NARRATIVE: CASE EVENT DATE: 20231015
